FAERS Safety Report 5032620-8 (Version None)
Quarter: 2006Q2

REPORT INFORMATION
  Report Type: 
  Country: None (occurrence: None)
  Receive Date: 20060622
  Receipt Date: 20060531
  Transmission Date: 20061013
  Serious: Yes (Hospitalization)
  Sender: FDA-Public Use
  Company Number: PHNU2006DE02164

PATIENT
  Age: 52 Year
  Sex: Male

DRUGS (7)
  1. THIAMAZOLE [Suspect]
     Dates: start: 20060328
  2. CERTICAN [Suspect]
     Indication: HEART TRANSPLANT
     Dosage: 2.5 MG, BID
     Route: 048
     Dates: start: 20060207
  3. CERTICAN [Suspect]
     Dosage: 2.75 MG, BID
     Route: 048
  4. PHENYTOIN [Suspect]
     Indication: MUSCLE SPASMS
     Dosage: 300 MG DAILY
     Route: 048
     Dates: start: 20060328, end: 20060601
  5. PHENYTOIN [Suspect]
     Dosage: 500 MG DAILY
     Route: 048
     Dates: start: 20060602
  6. SANDIMMUNE [Suspect]
     Indication: HEART TRANSPLANT
     Dates: start: 20060207
  7. TACROLIMUS [Concomitant]
     Indication: HEART TRANSPLANT
     Dosage: 7.5 MG, BID
     Route: 048
     Dates: start: 20060328

REACTIONS (7)
  - DRUG INTERACTION [None]
  - DRUG LEVEL DECREASED [None]
  - ENCEPHALOPATHY [None]
  - ENZYME INDUCTION [None]
  - JAUNDICE [None]
  - METABOLIC DISORDER [None]
  - MUSCLE SPASMS [None]
